FAERS Safety Report 7963554-4 (Version None)
Quarter: 2011Q4

REPORT INFORMATION
  Report Type: 
  Country: None (occurrence: None)
  Receive Date: 20111208
  Receipt Date: 20111019
  Transmission Date: 20120403
  Serious: No
  Sender: FDA-Public Use
  Company Number: US-BAYER-2011-102200

PATIENT
  Age: 74 Year
  Sex: Male
  Weight: 93 kg

DRUGS (3)
  1. ASPIRIN [Suspect]
     Dosage: 21 DF, QD
  2. ALEVE (CAPLET) [Suspect]
     Indication: PAIN
     Dosage: 2 DF, QD
     Route: 048
     Dates: start: 20111018, end: 20111018
  3. ZOCOR [Concomitant]

REACTIONS (1)
  - RASH MACULAR [None]
